FAERS Safety Report 5215174-2 (Version None)
Quarter: 2007Q1

REPORT INFORMATION
  Report Type: 
  Country: None (occurrence: None)
  Receive Date: 20061108
  Receipt Date: 20060524
  Transmission Date: 20070707
  Serious: Yes (Other)
  Sender: FDA-Public Use
  Company Number: US200605005733

PATIENT
  Sex: Female

DRUGS (2)
  1. PROZAC [Suspect]
  2. WELLBUTRIN [Concomitant]

REACTIONS (1)
  - CONVULSION [None]
